FAERS Safety Report 8141862-4 (Version None)
Quarter: 2012Q1

REPORT INFORMATION
  Report Type: 
  Country: None (occurrence: None)
  Receive Date: 20120216
  Receipt Date: 20120213
  Transmission Date: 20120608
  Serious: Yes (Other)
  Sender: FDA-Public Use
  Company Number: US-PFIZER INC-2012039051

PATIENT
  Sex: Male
  Weight: 95.238 kg

DRUGS (10)
  1. ASPIRIN [Concomitant]
     Dosage: UNK
  2. IMDUR [Concomitant]
     Dosage: UNK
  3. DEXAMETHASONE [Concomitant]
     Dosage: UNK
  4. NEURONTIN [Suspect]
     Indication: DIABETIC NEUROPATHY
     Dosage: UNK
     Dates: start: 20000101, end: 20030101
  5. NIASPAN [Concomitant]
     Dosage: UNK
  6. LIPITOR [Concomitant]
     Dosage: UNK
  7. NORVASC [Concomitant]
     Dosage: UNK
  8. LYRICA [Suspect]
     Indication: DIABETIC NEUROPATHY
     Dosage: 100 MG, 2X/DAY
     Dates: start: 20030101
  9. CARDIZEM [Concomitant]
     Dosage: UNK
  10. TOPROL-XL [Concomitant]
     Dosage: UNK

REACTIONS (2)
  - CARDIAC OPERATION [None]
  - DRUG INEFFECTIVE [None]
